FAERS Safety Report 8816708 (Version 1)
Quarter: 2012Q4

REPORT INFORMATION
  Report Type: Spontaneous
  Country: US (occurrence: None)
  Receive Date: 20120928
  Receipt Date: 20120928
  Transmission Date: 20130627
  Serious: Yes (Other)
  Sender: FDA-Public Use
  Company Number: ADR-2012-01772

PATIENT
  Sex: Male

DRUGS (2)
  1. LIORESAL INTRATHECAL [Suspect]
     Indication: SPASTICITY
     Dosage: 373.3 mcg/day (flex)
  2. LIORESAL INTRATHECAL [Suspect]
     Indication: SPINAL CORD INJURY
     Dosage: 373.3 mcg/day (flex)

REACTIONS (4)
  - Headache [None]
  - Medical device discomfort [None]
  - Muscle spasticity [None]
  - Colitis [None]
